FAERS Safety Report 5232627-1 (Version None)
Quarter: 2007Q1

REPORT INFORMATION
  Report Type: 
  Country: None (occurrence: None)
  Receive Date: 20070207
  Receipt Date: 20070202
  Transmission Date: 20070707
  Serious: Yes (Other)
  Sender: FDA-Public Use
  Company Number: PR-GILEAD-2004-0007211

PATIENT
  Age: 31 Year
  Sex: Female

DRUGS (6)
  1. VIREAD [Suspect]
     Indication: HIV INFECTION
     Route: 048
     Dates: start: 20031104
  2. EPIVIR [Concomitant]
     Indication: HIV INFECTION
  3. SUSTIVA [Concomitant]
     Indication: HIV INFECTION
     Dates: end: 20031021
  4. ZERIT [Concomitant]
     Indication: HIV INFECTION
     Dates: end: 20031021
  5. VIRACEPT [Concomitant]
     Indication: HIV INFECTION
     Dates: start: 20031104
  6. COMBIVIR [Concomitant]
     Indication: HIV INFECTION

REACTIONS (2)
  - PREGNANCY [None]
  - ULTRASOUND ANTENATAL SCREEN ABNORMAL [None]
